FAERS Safety Report 15929231 (Version 1)
Quarter: 2019Q1

REPORT INFORMATION
  Report Type: Report from Study
  Country: None (occurrence: IN)
  Receive Date: 20190206
  Receipt Date: 20190206
  Transmission Date: 20190417
  Serious: Yes (Other)
  Sender: FDA-Public Use
  Company Number: IN-BAUSCH-BL-2019-003195

PATIENT
  Age: 22 Year
  Sex: Male

DRUGS (12)
  1. COLCHICINE. [Concomitant]
     Active Substance: COLCHICINE
     Indication: TYPE 2 LEPRA REACTION
     Dosage: FOR VARIABLE DURATIONS
  2. OFLOXACIN. [Suspect]
     Active Substance: OFLOXACIN
     Indication: LEPROMATOUS LEPROSY
     Dosage: INTENSIVE PHASE
     Route: 065
  3. PREDNISOLONE. [Suspect]
     Active Substance: PREDNISOLONE
     Indication: TYPE 2 LEPRA REACTION
     Dosage: MULTIPLE COURSES (MEAN DOSE OF 12,882.5 PLUS OR MINUS 5,130.3 MG)
     Route: 065
  4. PREDNISOLONE. [Suspect]
     Active Substance: PREDNISOLONE
     Dosage: TAPERED OFF WITHIN 6-12 MONTHS (2,505 PLUS OR MINUS 614 MG)
     Route: 065
  5. CLOFAZIMINE [Suspect]
     Active Substance: CLOFAZIMINE
     Indication: TYPE 2 LEPRA REACTION
     Dosage: MAINTENANCE PHASE
     Route: 065
  6. CLOFAZIMINE [Suspect]
     Active Substance: CLOFAZIMINE
     Indication: LEPROMATOUS LEPROSY
     Dosage: INTENSIVE PHASE
     Route: 065
  7. CLOFAZIMINE [Suspect]
     Active Substance: CLOFAZIMINE
     Route: 065
  8. HYDROXYCHLOROQUINE [Concomitant]
     Active Substance: HYDROXYCHLOROQUINE
     Indication: TYPE 2 LEPRA REACTION
     Dosage: FOR VARIABLE DURATIONS
  9. PENTOXIFYLLINE. [Concomitant]
     Active Substance: PENTOXIFYLLINE
     Indication: TYPE 2 LEPRA REACTION
     Dosage: FOR VARIABLE DURATIONS
  10. AZATHIOPRINE. [Concomitant]
     Active Substance: AZATHIOPRINE
     Indication: TYPE 2 LEPRA REACTION
     Dosage: 100-150 MG/DAY FOR VARIABLE DURATIONS
  11. MINOCYCLINE [Suspect]
     Active Substance: MINOCYCLINE\MINOCYCLINE HYDROCHLORIDE
     Indication: LEPROMATOUS LEPROSY
     Route: 065
  12. OFLOXACIN. [Suspect]
     Active Substance: OFLOXACIN
     Dosage: MAINTENANCE PHASE
     Route: 065

REACTIONS (5)
  - Skin hyperpigmentation [Unknown]
  - Infection [Recovered/Resolved]
  - Drug dependence [Unknown]
  - Type 2 lepra reaction [Recovered/Resolved]
  - Therapeutic response decreased [Recovered/Resolved]
